FAERS Safety Report 10195161 (Version 1)
Quarter: 2014Q2

REPORT INFORMATION
  Report Type: Spontaneous
  Country: GB (occurrence: GB)
  Receive Date: 20140526
  Receipt Date: 20140526
  Transmission Date: 20141212
  Serious: Yes (Disabling)
  Sender: FDA-Public Use
  Company Number: US-ASTRAZENECA-2014SE35924

PATIENT
  Age: 53 Year
  Sex: Female
  Weight: 80.7 kg

DRUGS (12)
  1. CANDESARTAN [Suspect]
     Indication: PRODUCT USED FOR UNKNOWN INDICATION
     Route: 048
     Dates: start: 20140326
  2. OXYAL [Concomitant]
  3. CETRABEN [Concomitant]
  4. VALSARTAN [Concomitant]
     Dosage: UNK
     Dates: start: 20140127, end: 20140320
  5. SALBUTAMOL [Concomitant]
     Dosage: UNK
     Dates: start: 20140207, end: 20140307
  6. ESTRADIOL VALERATE [Concomitant]
     Dates: start: 20140424, end: 20140425
  7. ESTRADIOL VALERATE [Concomitant]
     Dates: start: 20140317, end: 20140318
  8. DEXAMETHASONE [Concomitant]
  9. CLENIL MODULITE [Concomitant]
     Dosage: UNK
     Dates: start: 20140206, end: 20140416
  10. CITALOPRAM [Concomitant]
     Dosage: UNK
     Dates: start: 20140127, end: 20140414
  11. BETAMETHASONE VALERATE [Concomitant]
     Dosage: UNK
  12. BENDROFLUMETHIAZIDE [Concomitant]
     Dosage: UNK
     Dates: start: 20140127

REACTIONS (3)
  - Listless [Unknown]
  - Dyspnoea [Unknown]
  - Rash macular [Recovering/Resolving]
